FAERS Safety Report 24784235 (Version 2)
Quarter: 2025Q2

REPORT INFORMATION
  Report Type: Spontaneous
  Country: US (occurrence: US)
  Receive Date: 20241227
  Receipt Date: 20250514
  Transmission Date: 20250716
  Serious: No
  Sender: INCYTE
  Company Number: US-EVENT-000858

PATIENT

DRUGS (1)
  1. OPZELURA [Suspect]
     Active Substance: RUXOLITINIB PHOSPHATE
     Dosage: UNK, TID
     Route: 065

REACTIONS (3)
  - Product packaging quantity issue [Unknown]
  - Product physical consistency issue [Unknown]
  - Off label use [Unknown]
